FAERS Safety Report 10102212 (Version 1)
Quarter: 2014Q2

REPORT INFORMATION
  Report Type: Spontaneous
  Country: DE (occurrence: None)
  Receive Date: 20140422
  Receipt Date: 20140422
  Transmission Date: 20141212
  Serious: Yes (Other)
  Sender: FDA-Public Use
  Company Number: AUR-APL-2014-04809

PATIENT
  Age: 51 Year
  Sex: Female

DRUGS (2)
  1. PAROXETINE (PAROXETINE) [Suspect]
     Indication: PRODUCT USED FOR UNKNOWN INDICATION
  2. OPIPRAMOL [Suspect]
     Dosage: 25 MG AT LUNCHTIME, 75 MG AT NIGHT, UNKNOWN

REACTIONS (12)
  - Fatigue [None]
  - Social problem [None]
  - Depression [None]
  - Restlessness [None]
  - Nervousness [None]
  - Irritability [None]
  - Crying [None]
  - Sleep disorder [None]
  - Listless [None]
  - Anhedonia [None]
  - Sleep disorder [None]
  - Hepatic steatosis [None]
